FAERS Safety Report 8442569-6 (Version None)
Quarter: 2012Q2

REPORT INFORMATION
  Report Type: 
  Country: None (occurrence: None)
  Receive Date: 20120615
  Receipt Date: 20110418
  Transmission Date: 20120825
  Serious: No
  Sender: FDA-Public Use
  Company Number: US-FOUGERA-2011FO000161

PATIENT
  Age: 13 Month
  Sex: Female
  Weight: 8.16 kg

DRUGS (1)
  1. HYDROCORTISONE [Suspect]
     Indication: ACCIDENTAL EXPOSURE
     Dates: start: 20110418

REACTIONS (1)
  - ACCIDENTAL EXPOSURE [None]
